FAERS Safety Report 5483569-8 (Version None)
Quarter: 2007Q4

REPORT INFORMATION
  Report Type: 
  Country: None (occurrence: None)
  Receive Date: 20071009
  Receipt Date: 20070919
  Transmission Date: 20080405
  Serious: Yes (Other)
  Sender: FDA-Public Use
  Company Number: ENT 2006-0119

PATIENT
  Age: 70 Year
  Sex: Female

DRUGS (11)
  1. COMTAN [Suspect]
     Indication: PARKINSON'S DISEASE
     Dosage: 800 MG, 4 IN 1 D, ORAL
     Route: 048
     Dates: start: 20000824
  2. SINEMET [Concomitant]
  3. PRAMIPEXOLE (UNKNOWN) [Concomitant]
  4. SELEGILINE (UNKNOWN) [Concomitant]
  5. TRIHEXYPHENIDYL HCL [Concomitant]
  6. AMLODIPINE [Concomitant]
  7. METOPROLOL SLOW RELEASE (UNKNOWN) [Concomitant]
  8. ETODOLAC (UNKNOWN) [Concomitant]
  9. PROTRIPTYLINE (UNKNOWN) [Concomitant]
  10. LOPERAMIDE (UNKNOWN) [Concomitant]
  11. MVI (UNKNOWN) [Concomitant]

REACTIONS (5)
  - BLOOD PRESSURE INCREASED [None]
  - FEELING JITTERY [None]
  - HOT FLUSH [None]
  - PALPITATIONS [None]
  - VISION BLURRED [None]
